FAERS Safety Report 15590190 (Version 2)
Quarter: 2023Q2

REPORT INFORMATION
  Report Type: Spontaneous
  Country: US (occurrence: US)
  Receive Date: 20181106
  Receipt Date: 20230428
  Transmission Date: 20230721
  Serious: Yes (Hospitalization, Other)
  Sender: FDA-Public Use
  Company Number: US-GLAXOSMITHKLINE-US2018GSK201419

PATIENT

DRUGS (3)
  1. PREVACID 24 HR [Suspect]
     Active Substance: LANSOPRAZOLE
     Indication: Dyspepsia
     Dosage: 20 MG, QD
     Route: 065
     Dates: start: 20100101, end: 20111001
  2. PANTOPRAZOLE [Suspect]
     Active Substance: PANTOPRAZOLE
     Indication: Dyspepsia
     Dosage: 20 MG, QD
     Route: 065
  3. PRILOSEC [Suspect]
     Active Substance: OMEPRAZOLE MAGNESIUM
     Indication: Product used for unknown indication
     Dosage: UNK
     Route: 065
     Dates: start: 20100101, end: 20111001

REACTIONS (11)
  - Acute kidney injury [Unknown]
  - Renal failure [Unknown]
  - Dialysis [Unknown]
  - Chronic kidney disease [Unknown]
  - Kidney infection [Unknown]
  - Glomerulonephritis [Unknown]
  - Renal tubular necrosis [Unknown]
  - Pyelonephritis [Unknown]
  - Azotaemia [Unknown]
  - Nephrogenic anaemia [Unknown]
  - Oliguria [Unknown]
